FAERS Safety Report 5374290-5 (Version None)
Quarter: 2007Q2

REPORT INFORMATION
  Report Type: 
  Country: None (occurrence: None)
  Receive Date: 20070629
  Receipt Date: 20070420
  Transmission Date: 20071010
  Serious: Yes (Other)
  Sender: FDA-Public Use
  Company Number: JP-ROCHE-332716

PATIENT
  Age: 13 Year
  Sex: Female
  Weight: 44 kg

DRUGS (5)
  1. TAMIFLU [Suspect]
     Route: 048
     Dates: start: 20030123, end: 20030123
  2. TAMIFLU [Suspect]
     Route: 048
     Dates: start: 20030124, end: 20030126
  3. TAMIFLU [Suspect]
     Route: 048
     Dates: start: 20030127, end: 20030127
  4. SOLANTAL [Concomitant]
     Route: 048
     Dates: start: 20030123, end: 20030131
  5. HUSCODE [Concomitant]
     Indication: COUGH
     Route: 048
     Dates: start: 20030123, end: 20030131

REACTIONS (1)
  - HALLUCINATION [None]
